FAERS Safety Report 23770286 (Version 1)
Quarter: 2024Q2

REPORT INFORMATION
  Report Type: Spontaneous
  Country: US (occurrence: US)
  Receive Date: 20240422
  Receipt Date: 20240422
  Transmission Date: 20240716
  Serious: No
  Sender: FDA-Public Use
  Company Number: US-SANOFI-02014367

PATIENT
  Sex: Female

DRUGS (2)
  1. DUPIXENT [Suspect]
     Active Substance: DUPILUMAB
     Indication: Eczema
     Dosage: UNK
     Dates: start: 202308
  2. RESTASIS [Concomitant]
     Active Substance: CYCLOSPORINE
     Indication: Dry eye
     Dosage: UNK
     Dates: start: 2023

REACTIONS (3)
  - Ocular hyperaemia [Unknown]
  - Conjunctivitis [Unknown]
  - Eczema [Unknown]

NARRATIVE: CASE EVENT DATE: 20231201
